FAERS Safety Report 14035603 (Version 10)
Quarter: 2019Q2

REPORT INFORMATION
  Report Type: Report from Study
  Country: US (occurrence: US)
  Receive Date: 20171003
  Receipt Date: 20190606
  Transmission Date: 20190711
  Serious: Yes (Hospitalization, Other)
  Sender: FDA-Public Use
  Company Number: US-ACTELION-A-US2017-160086

PATIENT
  Age: 51 Year
  Sex: Female
  Weight: 113.38 kg

DRUGS (6)
  1. UPTRAVI [Suspect]
     Active Substance: SELEXIPAG
     Indication: PULMONARY ARTERIAL HYPERTENSION
     Dosage: 200 MCG, BID
     Route: 048
  2. ADCIRCA [Concomitant]
     Active Substance: TADALAFIL
  3. UPTRAVI [Suspect]
     Active Substance: SELEXIPAG
     Dosage: 1600 MCG, BID
     Route: 048
  4. UPTRAVI [Suspect]
     Active Substance: SELEXIPAG
     Dosage: 2000 MCG, BID
     Route: 048
     Dates: start: 20170902, end: 20181117
  5. ADEMPAS [Concomitant]
     Active Substance: RIOCIGUAT
  6. LETAIRIS [Concomitant]
     Active Substance: AMBRISENTAN

REACTIONS (16)
  - Fluid retention [Unknown]
  - Hypotension [Unknown]
  - Diarrhoea [Unknown]
  - Dizziness [Unknown]
  - Feeling cold [Unknown]
  - Paraesthesia [Unknown]
  - Incorrect dose administered [Unknown]
  - Nausea [Unknown]
  - Dizziness postural [Unknown]
  - Swelling face [Unknown]
  - Feeling abnormal [Unknown]
  - Muscle spasms [Unknown]
  - Pain [Unknown]
  - Hospice care [Unknown]
  - Unevaluable event [Unknown]
  - Insomnia [Unknown]

NARRATIVE: CASE EVENT DATE: 20170902
